FAERS Safety Report 5389880-3 (Version None)
Quarter: 2007Q3

REPORT INFORMATION
  Report Type: 
  Country: None (occurrence: None)
  Receive Date: 20070718
  Receipt Date: 20070712
  Transmission Date: 20080115
  Serious: Yes (Other)
  Sender: FDA-Public Use
  Company Number: PHNU2007DE02228

PATIENT
  Age: 33 Year
  Sex: Male
  Weight: 49 kg

DRUGS (100)
  1. MYFORTIC [Suspect]
     Indication: RENAL TRANSPLANT
     Dosage: 576 MG/DAY
     Route: 048
     Dates: start: 20060608, end: 20060612
  2. COTRIM DS [Concomitant]
     Dosage: 0.5 DF, Q48H
     Route: 048
     Dates: start: 20060526, end: 20060602
  3. COTRIM DS [Concomitant]
     Dosage: 0.5 DF, QD
     Dates: start: 20060605, end: 20060608
  4. COTRIM DS [Concomitant]
     Dosage: 0.5 DF, QD
     Route: 048
     Dates: start: 20060612, end: 20060612
  5. TORSEMIDE [Concomitant]
     Dosage: FROM 5MG/DAY UP TO 30MG/DAY
     Route: 048
     Dates: start: 20060520, end: 20060525
  6. TORSEMIDE [Concomitant]
     Dosage: 5 MG, BID
     Route: 048
     Dates: start: 20060526, end: 20060529
  7. TORSEMIDE [Concomitant]
     Dosage: FROM 10MG/DAY UP TO 60MG/DAY
     Route: 048
     Dates: start: 20060530, end: 20060612
  8. AMPHO-MORONAL [Concomitant]
     Dosage: 1 DF, QID
     Route: 048
     Dates: start: 20060525, end: 20060612
  9. KALINOR [Concomitant]
     Dosage: 1 DF, BID
     Route: 048
     Dates: start: 20060524, end: 20060524
  10. KALINOR RETARD [Concomitant]
     Dosage: 600 MG, QD
     Route: 048
     Dates: start: 20060526, end: 20060601
  11. ZANTIC [Concomitant]
  12. PREDNISOLONE [Concomitant]
     Dosage: 100 MG, QD
     Route: 048
     Dates: start: 20060522, end: 20060523
  13. FENISTIL [Concomitant]
     Dosage: 1 DF, QD
     Route: 042
     Dates: start: 20060522, end: 20060523
  14. FENISTIL [Concomitant]
     Dosage: 1 DF, QD
     Route: 048
     Dates: start: 20060530, end: 20060601
  15. POTASSIUM CHLORIDE [Concomitant]
     Dosage: 40 MMOL, ONCE/SINGLE
     Route: 042
     Dates: start: 20060525, end: 20060525
  16. DIBLOCIN [Concomitant]
     Dosage: 1 MG, QD
     Route: 048
     Dates: start: 20060526, end: 20060529
  17. BAYOTENSIN AKUT [Concomitant]
     Dosage: 1 DF, QD
     Route: 048
     Dates: start: 20060520, end: 20060520
  18. BAYOTENSIN AKUT [Concomitant]
     Dosage: 1 DF, QD
     Route: 048
     Dates: start: 20060526, end: 20060526
  19. BAYOTENSIN AKUT [Concomitant]
     Dosage: 1 DF, QD
     Dates: start: 20060602, end: 20060602
  20. NITROGLYCERIN [Concomitant]
     Dosage: 1 DF, QD
     Route: 048
     Dates: start: 20060527, end: 20060527
  21. NITROGLYCERIN [Concomitant]
     Dosage: 1 DF, OFTEN
     Route: 048
     Dates: start: 20060601, end: 20060601
  22. NITROGLYCERIN [Concomitant]
     Dosage: 1 DF, BID
     Route: 048
     Dates: start: 20060602, end: 20060602
  23. HEPARIN SODIUM [Concomitant]
     Dosage: 2000 IU, QD ON 19 MAY; 20.; 31. MAY; 02 JUN
     Route: 042
     Dates: start: 20060519
  24. FRESH FROZEN PLASMA [Concomitant]
     Dosage: 1 L, QD
     Route: 042
     Dates: start: 20060519, end: 20060519
  25. FRESH FROZEN PLASMA [Concomitant]
     Dosage: 1.6 L, QD
     Route: 042
     Dates: start: 20060520, end: 20060520
  26. FRESH FROZEN PLASMA [Concomitant]
     Dosage: 1.4 L, QD
     Route: 048
     Dates: start: 20060610, end: 20060610
  27. FRESH FROZEN PLASMA [Concomitant]
     Dosage: 1 L, QD
     Dates: start: 20060611, end: 20060611
  28. ALBUMIN (HUMAN) [Concomitant]
     Dosage: 1 L, QD
     Route: 042
     Dates: start: 20060519, end: 20060519
  29. ALBUMIN (HUMAN) [Concomitant]
     Dosage: 4.5% 0.4L
     Dates: start: 20060520, end: 20060520
  30. ALBUMIN (HUMAN) [Concomitant]
     Dosage: 4.5% 1.5L
     Dates: start: 20060609, end: 20060609
  31. ALBUMIN (HUMAN) [Concomitant]
     Dosage: 20% 1.5L
     Dates: start: 20060610, end: 20060610
  32. ALBUMIN (HUMAN) [Concomitant]
     Dosage: 4.5% 1.5L; 20% 0.55L
     Dates: start: 20060612, end: 20060612
  33. ACTRAPID HUMAN [Concomitant]
     Dosage: FROM 6IE UPT TO 12IE/DAY
     Dates: start: 20060521, end: 20060524
  34. ACTRAPID HUMAN [Concomitant]
     Dosage: 10+6IE
     Route: 058
     Dates: start: 20060530, end: 20060530
  35. ACTRAPID HUMAN [Concomitant]
     Dosage: 4+10+8IE/DAY
     Route: 058
     Dates: start: 20060601, end: 20060601
  36. ACTRAPID HUMAN [Concomitant]
     Dosage: 4+6IE/DAY
     Route: 058
     Dates: start: 20060602, end: 20060602
  37. VALCYTE [Concomitant]
     Dosage: 450 MG, QD
     Route: 048
     Dates: start: 20060530, end: 20060612
  38. ATACAND [Concomitant]
     Dosage: 1 DF, QD
     Route: 048
     Dates: start: 20060529, end: 20060612
  39. CYNT [Concomitant]
     Dosage: 0.2 MG, BID
     Route: 048
     Dates: start: 20060601, end: 20060612
  40. THYMOGLOBULIN [Concomitant]
     Dosage: 7.5 MG, QD
     Route: 048
     Dates: start: 20060530, end: 20060601
  41. RESONIUM A [Concomitant]
     Dosage: 30 MG, QD
     Route: 048
     Dates: start: 20060605, end: 20060605
  42. RESONIUM A [Concomitant]
     Dosage: 30 MG, TID
     Route: 048
     Dates: start: 20060606, end: 20060606
  43. RESONIUM A [Concomitant]
     Dosage: 30 MG, QD
     Route: 048
     Dates: start: 20060607, end: 20060607
  44. SORBIT [Concomitant]
     Dosage: 30 MG, QD
     Route: 048
     Dates: start: 20060605, end: 20060605
  45. SORBIT [Concomitant]
     Dosage: 30 MG, TID
     Route: 048
     Dates: start: 20060606, end: 20060606
  46. SORBIT [Concomitant]
     Dosage: 1 DF, QD
     Route: 048
     Dates: start: 20060607, end: 20060607
  47. PRIMAXIN [Concomitant]
     Dosage: 500 MG, QD
     Route: 042
     Dates: start: 20060612, end: 20060612
  48. NEUPOGEN [Concomitant]
     Dosage: 300 UG, QD
     Route: 042
     Dates: start: 20060612, end: 20060612
  49. NABIC (ILLEGIBLE) [Concomitant]
     Dosage: 1 DF, BID
     Route: 048
     Dates: start: 20060429, end: 20060608
  50. VIGANTOLETTEN [Concomitant]
     Dosage: 1 DF, ONCE/SINGLE
     Route: 048
     Dates: start: 20060429, end: 20060429
  51. VIGANTOLETTEN [Concomitant]
     Dosage: 1 DF, ONCE/SINGLE
     Route: 048
     Dates: start: 20060508, end: 20060508
  52. VIGANTOLETTEN [Concomitant]
     Dosage: 1 DF, ONCE/SINGLE
     Route: 048
     Dates: start: 20060515, end: 20060515
  53. VIGANTOLETTEN [Concomitant]
     Dosage: 1 DF, ONCE/SINGLE
     Route: 048
     Dates: start: 20060520, end: 20060520
  54. AVELOX [Concomitant]
     Dosage: 400 MG, QD
     Route: 048
     Dates: start: 20060429, end: 20060523
  55. ARANESP [Concomitant]
     Dosage: 10 UG, ONCE/SINGLE
     Route: 058
     Dates: start: 20060525, end: 20060525
  56. ARANESP [Concomitant]
     Dosage: 10 UG, ONCE/SINGLE
     Route: 058
     Dates: start: 20060601, end: 20060601
  57. ARANESP [Concomitant]
     Dosage: 1 DF, ONCE/SINGLE
     Route: 058
     Dates: start: 20060504, end: 20060504
  58. ARANESP [Concomitant]
     Dosage: 1 DF, ONCE/SINGLE
     Route: 058
     Dates: start: 20060511, end: 20060511
  59. ACETAMINOPHEN [Concomitant]
     Dosage: 500 MG, ONCE/SINGLE
     Route: 048
     Dates: start: 20060429, end: 20060429
  60. ACETAMINOPHEN [Concomitant]
     Dosage: 1000 MG, Q12H
     Dates: start: 20060530, end: 20060601
  61. ACETAMINOPHEN [Concomitant]
     Dosage: 500 MG, QD
     Route: 048
     Dates: start: 20060522, end: 20060523
  62. SODIUM CHLORIDE [Concomitant]
     Dosage: 1 L, ONCE/SINGLE
     Dates: start: 20060429, end: 20060429
  63. SODIUM CHLORIDE [Concomitant]
     Dosage: 1 L, BID
     Route: 042
     Dates: start: 20060430, end: 20060430
  64. SODIUM CHLORIDE [Concomitant]
     Dosage: 1 L, ONCE/SINGLE
     Route: 042
     Dates: start: 20060612, end: 20060612
  65. SODIUM CHLORIDE [Concomitant]
     Dosage: 1 DF, ONCE/SINGLE
     Route: 042
     Dates: start: 20060520, end: 20060520
  66. ACC [Concomitant]
     Dosage: 600 MG, ONCE/SINGLE
     Dates: start: 20060508, end: 20060508
  67. ACC [Concomitant]
     Dosage: 600 MG, BID
     Route: 048
     Dates: start: 20060509, end: 20060509
  68. CARMEN [Concomitant]
     Dosage: 10 MG, QD
     Dates: start: 20060501, end: 20060607
  69. CARMEN [Concomitant]
     Dosage: 1 DF, TID
     Route: 048
     Dates: start: 20060608, end: 20060608
  70. CARMEN [Concomitant]
     Dosage: 1 DF, BID
     Route: 048
     Dates: start: 20060609, end: 20060609
  71. CARMEN [Concomitant]
     Dosage: 1 DF, QD
     Route: 048
     Dates: start: 20060610, end: 20060612
  72. CALCIUM CARBONATE [Concomitant]
     Dosage: 1000 MG, QD
     Route: 048
     Dates: start: 20060501, end: 20060501
  73. CALCIUM CARBONATE [Concomitant]
     Dosage: 1000 MG, BID
     Route: 048
     Dates: start: 20060502, end: 20060502
  74. CALCIUM CARBONATE [Concomitant]
     Dosage: 1000 MG, TID
     Route: 048
     Dates: start: 20060503, end: 20060612
  75. CLONT [Concomitant]
     Dosage: 400 MG, QD
     Route: 048
     Dates: start: 20060511, end: 20060514
  76. CLONT [Concomitant]
     Dosage: 400 MG, TID
     Route: 048
     Dates: start: 20060515, end: 20060523
  77. JONOSTERIL [Concomitant]
     Dosage: 1 DF, ONCE/SINGLE
     Route: 042
     Dates: start: 20060516, end: 20060516
  78. JONOSTERIL [Concomitant]
     Dosage: 1 DF, TID
     Route: 042
     Dates: start: 20060517, end: 20060517
  79. JONOSTERIL [Concomitant]
     Dosage: 1 DF, ONCE/SINGLE
     Route: 042
     Dates: start: 20060519, end: 20060519
  80. JONOSTERIL [Concomitant]
     Dosage: 1 DF, ONCE/SINGLE
     Route: 042
     Dates: start: 20060526, end: 20060526
  81. JONOSTERIL [Concomitant]
     Dosage: 1 DF, ONCE/SINGLE
     Route: 042
     Dates: start: 20060529, end: 20060529
  82. MABTHERA [Suspect]
     Indication: RENAL FAILURE
     Dosage: 500MG/DAY
     Route: 042
     Dates: start: 20060522, end: 20060523
  83. PROGRAF [Concomitant]
     Dosage: 1.66MG/DAY
     Route: 048
     Dates: start: 20060429, end: 20060612
  84. VESDIL [Concomitant]
     Dosage: 10MG/DAY
     Route: 048
     Dates: start: 20060429, end: 20060518
  85. VESDIL [Concomitant]
     Dosage: 7.1MG/DAY
     Dates: start: 20060520, end: 20060612
  86. CELLCEPT [Concomitant]
     Dosage: 500 MG, BID
     Route: 048
     Dates: start: 20060429, end: 20060507
  87. CELLCEPT [Concomitant]
     Dosage: 250 MG, BID
     Route: 048
     Dates: start: 20060508
  88. METHYLPREDNISOLONE [Concomitant]
     Dosage: 4 MG, QD
     Route: 048
     Dates: start: 20060429
  89. METHYLPREDNISOLONE [Concomitant]
     Dosage: 500 MG, ONCE/SINGLE
     Route: 042
     Dates: start: 20060520, end: 20060522
  90. METHYLPREDNISOLONE [Concomitant]
     Dosage: 500 MG, ONCE/SINGLE
     Route: 042
     Dates: start: 20060518, end: 20060518
  91. METHYLPREDNISOLONE [Concomitant]
     Dosage: 500 MG, BID
     Route: 042
     Dates: start: 20060519, end: 20060519
  92. METHYLPREDNISOLONE [Concomitant]
     Dosage: 500 MG, QD
     Route: 042
     Dates: start: 20060529, end: 20060530
  93. METHYLPREDNISOLONE [Concomitant]
     Dosage: 100+500MG/DAY
     Route: 042
     Dates: start: 20060531, end: 20060601
  94. METOPROLOL SUCCINATE [Concomitant]
     Dosage: 1 DF, BID
     Route: 048
     Dates: start: 20060429, end: 20060520
  95. METOPROLOL SUCCINATE [Concomitant]
     Dosage: 3DF/DAY 1/0/2 OR 2/0/1
     Route: 048
     Dates: start: 20060521, end: 20060525
  96. METOPROLOL SUCCINATE [Concomitant]
     Dosage: 2 DF, BID
     Route: 048
     Dates: start: 20060526
  97. PANTOZOL [Concomitant]
     Dosage: 20 MG, BID
     Route: 048
     Dates: start: 20060429, end: 20060523
  98. PANTOZOL [Concomitant]
     Dosage: 20 MG, QD
     Route: 048
     Dates: start: 20060524
  99. VESDIL [Concomitant]
     Dosage: 5 MG, BID
     Route: 048
     Dates: start: 20060429, end: 20060529
  100. VESDIL [Concomitant]
     Dosage: 5 MG, QD
     Route: 048
     Dates: start: 20060530

REACTIONS (5)
  - AGRANULOCYTOSIS [None]
  - HAEMOGLOBIN DECREASED [None]
  - PYREXIA [None]
  - THROMBOCYTOPENIA [None]
  - WHITE BLOOD CELL COUNT DECREASED [None]
